FAERS Safety Report 15636786 (Version 2)
Quarter: 2019Q1

REPORT INFORMATION
  Report Type: Spontaneous
  Country: US (occurrence: US)
  Receive Date: 20181120
  Receipt Date: 20190115
  Transmission Date: 20190417
  Serious: Yes (Other)
  Sender: FDA-Public Use
  Company Number: US-GLAXOSMITHKLINE-US2018GSK207274

PATIENT
  Age: 65 Year
  Sex: Female

DRUGS (3)
  1. BREO ELLIPTA [Suspect]
     Active Substance: FLUTICASONE FUROATE\VILANTEROL TRIFENATATE
     Indication: CHRONIC OBSTRUCTIVE PULMONARY DISEASE
  2. BREO ELLIPTA [Suspect]
     Active Substance: FLUTICASONE FUROATE\VILANTEROL TRIFENATATE
     Indication: ASTHMA
     Dosage: UNK
     Dates: start: 2015
  3. ANORO ELLIPTA [Suspect]
     Active Substance: UMECLIDINIUM BROMIDE\VILANTEROL TRIFENATATE
     Indication: PRODUCT USED FOR UNKNOWN INDICATION
     Dosage: UNK

REACTIONS (11)
  - Condition aggravated [Unknown]
  - Product selection error [Unknown]
  - Stress fracture [Unknown]
  - Spinal fracture [Unknown]
  - Multiple fractures [Unknown]
  - Osteoporosis [Unknown]
  - Bone density abnormal [Unknown]
  - Lower limb fracture [Unknown]
  - Bone density decreased [Unknown]
  - Prescription drug used without a prescription [Unknown]
  - Surgery [Unknown]

NARRATIVE: CASE EVENT DATE: 201806
